FAERS Safety Report 20033068 (Version 1)
Quarter: 2021Q4

REPORT INFORMATION
  Report Type: Spontaneous
  Country: None (occurrence: GB)
  Receive Date: 20211104
  Receipt Date: 20211104
  Transmission Date: 20220303
  Serious: No
  Sender: FDA-Public Use
  Company Number: GB-Bio Products Laboratory Ltd-2121455

PATIENT
  Age: 21 Year
  Sex: Female

DRUGS (21)
  1. HUMAN IMMUNOGLOBULIN G [Suspect]
     Active Substance: HUMAN IMMUNOGLOBULIN G
     Indication: Guillain-Barre syndrome
     Route: 042
     Dates: start: 20211011, end: 20211015
  2. ALFENTANIL [Concomitant]
     Active Substance: ALFENTANIL
  3. AMOXICILLIN [Concomitant]
     Active Substance: AMOXICILLIN
  4. BISACODYL [Concomitant]
     Active Substance: BISACODYL
  5. CLOTRIMAZOLE [Concomitant]
     Active Substance: CLOTRIMAZOLE
  6. DALTEPARIN [Concomitant]
     Active Substance: DALTEPARIN
  7. GABAPENTIN [Concomitant]
     Active Substance: GABAPENTIN
  8. LACTULOSE [Concomitant]
     Active Substance: LACTULOSE
  9. LANSOPRAZOLE [Concomitant]
     Active Substance: LANSOPRAZOLE
  10. POLYETHYLENE GLYCOLS [Concomitant]
     Active Substance: POLYETHYLENE GLYCOLS
  11. METOCLOPRAMIDE [Concomitant]
     Active Substance: METOCLOPRAMIDE
  12. METRONIDAZOLE [Concomitant]
     Active Substance: METRONIDAZOLE
  13. MIDAZOLAM [Concomitant]
     Active Substance: MIDAZOLAM
  14. MORPHINE SULFATE [Concomitant]
     Active Substance: MORPHINE SULFATE
  15. NOREPINEPHRINE [Concomitant]
     Active Substance: NOREPINEPHRINE
  16. PANTOPRAZOLE SODIUM [Concomitant]
     Active Substance: PANTOPRAZOLE SODIUM
  17. ACETAMINOPHEN [Concomitant]
     Active Substance: ACETAMINOPHEN
  18. PIPERACILLIN AND TAZOBACTAM [Concomitant]
     Active Substance: PIPERACILLIN SODIUM\TAZOBACTAM SODIUM
  19. PREGABALIN [Concomitant]
     Active Substance: PREGABALIN
  20. PROPOFOL [Concomitant]
     Active Substance: PROPOFOL
  21. SENNA [Concomitant]
     Active Substance: SENNA LEAF\SENNOSIDES\SENNOSIDES A AND B

REACTIONS (1)
  - Borrelia test positive [Unknown]

NARRATIVE: CASE EVENT DATE: 20211016
